FAERS Safety Report 7337068-9 (Version None)
Quarter: 2011Q1

REPORT INFORMATION
  Report Type: 
  Country: None (occurrence: None)
  Receive Date: 20110224
  Receipt Date: 20110216
  Transmission Date: 20110831
  Serious: Yes (Death, Hospitalization)
  Sender: FDA-Public Use
  Company Number: 2010AC000230

PATIENT
  Age: 85 Year
  Sex: Female

DRUGS (38)
  1. POTASSIUM [Concomitant]
  2. CLOPIDOGREL [Concomitant]
  3. DARVOCET [Concomitant]
  4. CLONIDINE [Concomitant]
  5. NITRO-DUR [Concomitant]
  6. CRESTOR [Concomitant]
  7. LIPITOR [Concomitant]
  8. COUMADIN [Concomitant]
  9. PLAVIX [Concomitant]
  10. ARICEPT [Concomitant]
  11. LEVOTHYROXINE SODIUM [Concomitant]
  12. DEMEROL [Concomitant]
  13. VASOTEC [Concomitant]
  14. LOVENOX [Concomitant]
  15. ASPIRIN [Concomitant]
  16. INTEGRILIN [Concomitant]
  17. LORAZEPAM [Concomitant]
  18. RANEXA [Concomitant]
  19. TYLENOL-500 [Concomitant]
  20. METAMUCIL-2 [Concomitant]
  21. CAPOTEN [Concomitant]
  22. LASIX [Concomitant]
  23. NAMENDA [Concomitant]
  24. NITROGLYCERIN [Concomitant]
  25. CANDESARTAN [Concomitant]
  26. NITROSTAT [Concomitant]
  27. TIAZAC [Concomitant]
  28. METOPROLOL SUCCINATE [Concomitant]
  29. ZOLOFT [Concomitant]
  30. PHENERGAN [Concomitant]
  31. POTASSIUM CHLORIDE [Concomitant]
  32. PREVACID [Concomitant]
  33. REGLAN [Concomitant]
  34. PEPCID [Concomitant]
  35. DIGOXIN [Suspect]
     Dosage: (.125 MG; QD; PO) (0.125 MG; QD; PO)
     Route: 048
     Dates: start: 20061031
  36. DIGOXIN [Suspect]
     Dosage: (.125 MG; QD; PO) (0.125 MG; QD; PO)
     Route: 048
     Dates: start: 20030401, end: 20080101
  37. ZETIA [Concomitant]
  38. TORADOL [Concomitant]

REACTIONS (57)
  - DEFORMITY [None]
  - ECONOMIC PROBLEM [None]
  - FOAMING AT MOUTH [None]
  - GASTROENTERITIS VIRAL [None]
  - ANGINA PECTORIS [None]
  - ELECTROCARDIOGRAM ABNORMAL [None]
  - PERIPHERAL VASCULAR DISORDER [None]
  - DYSSTASIA [None]
  - CARDIAC ARREST [None]
  - TOOTHACHE [None]
  - OSTEOARTHRITIS [None]
  - COAGULOPATHY [None]
  - ANHEDONIA [None]
  - DEMENTIA [None]
  - APNOEA [None]
  - PLATELET COUNT DECREASED [None]
  - BLOOD UREA INCREASED [None]
  - BLOOD CREATININE INCREASED [None]
  - BLOOD THYROID STIMULATING HORMONE DECREASED [None]
  - BLOOD SODIUM INCREASED [None]
  - DEHYDRATION [None]
  - ACUTE CORONARY SYNDROME [None]
  - PAIN IN EXTREMITY [None]
  - HYPERTENSIVE CRISIS [None]
  - CONFUSIONAL STATE [None]
  - ACUTE MYOCARDIAL INFARCTION [None]
  - ATRIAL FIBRILLATION [None]
  - LOSS OF CONSCIOUSNESS [None]
  - CARDIAC FAILURE CONGESTIVE [None]
  - HALLUCINATION, VISUAL [None]
  - FLUID RETENTION [None]
  - LOW DENSITY LIPOPROTEIN INCREASED [None]
  - CONSTIPATION [None]
  - SICK SINUS SYNDROME [None]
  - FALL [None]
  - ALANINE AMINOTRANSFERASE DECREASED [None]
  - PROTHROMBIN TIME PROLONGED [None]
  - CORONARY ARTERY STENOSIS [None]
  - MUSCULOSKELETAL PAIN [None]
  - INJURY [None]
  - DIZZINESS [None]
  - HEART RATE INCREASED [None]
  - BLOOD BILIRUBIN INCREASED [None]
  - THROMBOCYTOPENIA [None]
  - DECREASED APPETITE [None]
  - DIARRHOEA [None]
  - BLOOD PRESSURE DECREASED [None]
  - PAIN [None]
  - ANXIETY [None]
  - CORONARY ARTERY DISEASE [None]
  - MENTAL STATUS CHANGES [None]
  - CONDITION AGGRAVATED [None]
  - WEIGHT INCREASED [None]
  - BRADYCARDIA [None]
  - DEPRESSION [None]
  - BONE PAIN [None]
  - ATRIOVENTRICULAR BLOCK FIRST DEGREE [None]
